FAERS Safety Report 23134650 (Version 2)
Quarter: 2023Q4

REPORT INFORMATION
  Report Type: Report from Study
  Country: US (occurrence: US)
  Receive Date: 20231101
  Receipt Date: 20231115
  Transmission Date: 20240110
  Serious: Yes (Death, Hospitalization, Other)
  Sender: FDA-Public Use
  Company Number: US-TAIHOP-2023-007969

PATIENT
  Age: 53 Year
  Sex: Male

DRUGS (2)
  1. LONSURF [Suspect]
     Active Substance: TIPIRACIL HYDROCHLORIDE\TRIFLURIDINE
     Indication: Rectal cancer
     Dosage: DOSE, FREQUENCY UNKNOWN, CYCLE 1
     Route: 048
     Dates: start: 20230701
  2. LONSURF [Suspect]
     Active Substance: TIPIRACIL HYDROCHLORIDE\TRIFLURIDINE
     Dosage: DOSE, FREQUENCY UNKNOWN, CYCLE 2
     Route: 048
     Dates: start: 20230807

REACTIONS (6)
  - Disease progression [Fatal]
  - Rectal perforation [Unknown]
  - Fournier^s gangrene [Unknown]
  - Failure to thrive [Unknown]
  - Coma hepatic [Unknown]
  - Wound infection [Unknown]
